FAERS Safety Report 9643132 (Version 1)
Quarter: 2013Q4

REPORT INFORMATION
  Report Type: Spontaneous
  Country: US (occurrence: US)
  Receive Date: 20131024
  Receipt Date: 20131024
  Transmission Date: 20140711
  Serious: Yes (Hospitalization)
  Sender: FDA-Public Use
  Company Number: US-BAYER-2013-127187

PATIENT
  Age: 30 Year
  Sex: Female
  Weight: 55.33 kg

DRUGS (1)
  1. YASMIN [Suspect]

REACTIONS (2)
  - Pulmonary embolism [None]
  - Deep vein thrombosis [None]
